FAERS Safety Report 6935565-9 (Version None)
Quarter: 2010Q3

REPORT INFORMATION
  Report Type: 
  Country: None (occurrence: None)
  Receive Date: 20100823
  Receipt Date: 20100812
  Transmission Date: 20110219
  Serious: No
  Sender: FDA-Public Use
  Company Number: 2010BI004187

PATIENT
  Age: 39 Year
  Sex: Male

DRUGS (1)
  1. TYSABRI [Suspect]
     Indication: MULTIPLE SCLEROSIS
     Route: 042
     Dates: start: 20090611

REACTIONS (7)
  - BACK PAIN [None]
  - FLUID RETENTION [None]
  - INSOMNIA [None]
  - MUSCLE SPASTICITY [None]
  - MUSCLE TIGHTNESS [None]
  - MUSCULOSKELETAL PAIN [None]
  - TREMOR [None]
